FAERS Safety Report 5818047-7 (Version None)
Quarter: 2008Q3

REPORT INFORMATION
  Report Type: 
  Country: None (occurrence: None)
  Receive Date: 20080722
  Receipt Date: 20070809
  Transmission Date: 20090109
  Serious: No
  Sender: FDA-Public Use
  Company Number: US-BAYER-US-2007-029976

PATIENT
  Age: 65 Year
  Sex: Female
  Weight: 69 kg

DRUGS (8)
  1. MAGNEVIST [Suspect]
     Indication: NUCLEAR MAGNETIC RESONANCE IMAGING BRAIN
     Dosage: UNIT DOSE: 14 ML
     Route: 042
     Dates: start: 20070801, end: 20070801
  2. MAGNEVIST [Suspect]
  3. LEXAPRO [Concomitant]
  4. AMILORIDE HYDROCHLORIDE [Concomitant]
  5. FOSAMAX [Concomitant]
  6. LABETALOL HCL [Concomitant]
  7. DIOVAN [Concomitant]
  8. ADVAIR DISKUS 100/50 [Concomitant]

REACTIONS (2)
  - NAUSEA [None]
  - URTICARIA [None]
